FAERS Safety Report 6112236-2 (Version None)
Quarter: 2009Q1

REPORT INFORMATION
  Report Type: 
  Country: None (occurrence: None)
  Receive Date: 20090310
  Receipt Date: 20090225
  Transmission Date: 20090719
  Serious: Yes (Other)
  Sender: FDA-Public Use
  Company Number: DSA_33233_2009

PATIENT
  Age: 20 Year
  Sex: Male

DRUGS (8)
  1. LORAZEPAM [Suspect]
     Indication: DRUG USE FOR UNKNOWN INDICATION
     Dosage: (10 MG QD), (5.5 MG QD), (2 MG QD)
     Dates: start: 20081212, end: 20081217
  2. LORAZEPAM [Suspect]
     Indication: DRUG USE FOR UNKNOWN INDICATION
     Dosage: (10 MG QD), (5.5 MG QD), (2 MG QD)
     Dates: start: 20081218, end: 20081229
  3. LORAZEPAM [Suspect]
     Indication: DRUG USE FOR UNKNOWN INDICATION
     Dosage: (10 MG QD), (5.5 MG QD), (2 MG QD)
     Dates: start: 20081230
  4. NOZINAN / 00038601/ (NOZINAN - LEVOMEPROMAZINE) (NOT SPECIFIED) [Suspect]
     Indication: DRUG USE FOR UNKNOWN INDICATION
     Dosage: (200 MG QD ORAL), (100 MG QD ORAL), (50 MG QD ORAL)
     Route: 048
     Dates: start: 20081212, end: 20081214
  5. NOZINAN / 00038601/ (NOZINAN - LEVOMEPROMAZINE) (NOT SPECIFIED) [Suspect]
     Indication: DRUG USE FOR UNKNOWN INDICATION
     Dosage: (200 MG QD ORAL), (100 MG QD ORAL), (50 MG QD ORAL)
     Route: 048
     Dates: start: 20081222, end: 20081223
  6. NOZINAN / 00038601/ (NOZINAN - LEVOMEPROMAZINE) (NOT SPECIFIED) [Suspect]
     Indication: DRUG USE FOR UNKNOWN INDICATION
     Dosage: (200 MG QD ORAL), (100 MG QD ORAL), (50 MG QD ORAL)
     Route: 048
     Dates: start: 20081224, end: 20090105
  7. RISPERDAL [Concomitant]
  8. DEPAKINE CHRONO /01294701/ [Concomitant]

REACTIONS (4)
  - BLOOD PRESSURE DIASTOLIC INCREASED [None]
  - BLOOD PRESSURE SYSTOLIC INCREASED [None]
  - DRUG WITHDRAWAL SYNDROME [None]
  - TACHYCARDIA [None]
